FAERS Safety Report 6766568-5 (Version None)
Quarter: 2010Q2

REPORT INFORMATION
  Report Type: 
  Country: None (occurrence: None)
  Receive Date: 20100611
  Receipt Date: 20100601
  Transmission Date: 20101027
  Serious: Yes (Hospitalization)
  Sender: FDA-Public Use
  Company Number: US-ROCHE-700733

PATIENT
  Sex: Male
  Weight: 114.1 kg

DRUGS (13)
  1. BEVACIZUMAB [Suspect]
     Route: 042
     Dates: start: 20100331, end: 20100331
  2. DOCETAXEL [Suspect]
     Route: 042
     Dates: start: 20100331, end: 20100331
  3. CISPLATIN [Suspect]
     Route: 042
     Dates: start: 20100331, end: 20100331
  4. IRINOTECAN [Suspect]
     Route: 042
     Dates: start: 20100331, end: 20100331
  5. XANAX [Concomitant]
     Route: 048
  6. XANAX [Concomitant]
     Route: 048
  7. NORVASC [Concomitant]
     Route: 048
  8. ASPIRIN [Concomitant]
     Route: 048
  9. BACLOFEN [Concomitant]
  10. PLAVIX [Concomitant]
     Route: 048
  11. CYMBALTA [Concomitant]
     Route: 048
  12. ZOFRAN [Concomitant]
     Dosage: FREQUENCY Q8H AS NECESSARY
     Route: 048
  13. FENTANYL [Concomitant]
     Dosage: ROUTE: TQRM, FREQUENCY Q 72 H

REACTIONS (6)
  - DEHYDRATION [None]
  - FAILURE TO THRIVE [None]
  - FATIGUE [None]
  - HYPOPHAGIA [None]
  - NAUSEA [None]
  - VOMITING [None]
